FAERS Safety Report 11685898 (Version 1)
Quarter: 2015Q4

REPORT INFORMATION
  Report Type: Spontaneous
  Country: US (occurrence: CA)
  Receive Date: 20151030
  Receipt Date: 20151030
  Transmission Date: 20160304
  Serious: Yes (Other)
  Sender: FDA-Public Use
  Company Number: CA-TEVA-605330USA

PATIENT
  Sex: Female

DRUGS (1)
  1. RATIO-PREDNISOLONE [Suspect]
     Active Substance: PREDNISOLONE
     Indication: GLAUCOMA SURGERY
     Dosage: 1 PERCENT DAILY; 1 DROP ONCE A DAY
     Route: 047
     Dates: start: 201504

REACTIONS (2)
  - Eye haemorrhage [Not Recovered/Not Resolved]
  - Scleral haemorrhage [Not Recovered/Not Resolved]

NARRATIVE: CASE EVENT DATE: 20151022
